FAERS Safety Report 15825265 (Version 1)
Quarter: 2018Q4

REPORT INFORMATION
  Report Type: Spontaneous
  Country: US (occurrence: US)
  Receive Date: 20181215
  Receipt Date: 20181215
  Transmission Date: 20190205
  Serious: Yes (Hospitalization)
  Sender: FDA-Public Use
  Company Number: None

PATIENT
  Age: 29 Year
  Sex: Male
  Weight: 101.2 kg

DRUGS (1)
  1. NELFINAVIR [Suspect]
     Active Substance: NELFINAVIR
     Dates: end: 20181205

REACTIONS (2)
  - Cholelithiasis [None]
  - Cholecystitis acute [None]

NARRATIVE: CASE EVENT DATE: 20181205
